FAERS Safety Report 16787221 (Version 3)
Quarter: 2019Q4

REPORT INFORMATION
  Report Type: Spontaneous
  Country: US (occurrence: US)
  Receive Date: 20190909
  Receipt Date: 20191022
  Transmission Date: 20200122
  Serious: Yes (Other)
  Sender: FDA-Public Use
  Company Number: US-SA-2019SA249171

PATIENT
  Age: 76 Year
  Sex: Male

DRUGS (16)
  1. ATORVASTATIN CALCIUM. [Concomitant]
     Active Substance: ATORVASTATIN CALCIUM
  2. EPINEPHRINE. [Concomitant]
     Active Substance: EPINEPHRINE
  3. MONTELUKAST SODIUM. [Concomitant]
     Active Substance: MONTELUKAST SODIUM
  4. XOLAIR [Concomitant]
     Active Substance: OMALIZUMAB
  5. BUDESONIDE. [Concomitant]
     Active Substance: BUDESONIDE
  6. CARTIA XT [Concomitant]
     Active Substance: DILTIAZEM HYDROCHLORIDE
  7. DULERA [Concomitant]
     Active Substance: FORMOTEROL FUMARATE DIHYDRATE\MOMETASONE FUROATE
  8. AZITHROMYCIN ANHYDROUS. [Concomitant]
     Active Substance: AZITHROMYCIN ANHYDROUS
  9. SPIRIVA RESPIMAT [Concomitant]
     Active Substance: TIOTROPIUM BROMIDE
  10. TYLENOL [Concomitant]
     Active Substance: ACETAMINOPHEN
  11. VITAMIN D3 [Concomitant]
     Active Substance: CHOLECALCIFEROL
  12. ELIQUIS [Concomitant]
     Active Substance: APIXABAN
  13. PREDNISONE. [Concomitant]
     Active Substance: PREDNISONE
  14. DUPIXENT [Suspect]
     Active Substance: DUPILUMAB
     Indication: ASTHMA
     Dosage: 300 MG, QOW
     Route: 058
     Dates: start: 20190814
  15. ALLOPURINOL. [Concomitant]
     Active Substance: ALLOPURINOL
  16. DUPIXENT [Suspect]
     Active Substance: DUPILUMAB
     Indication: OSTEOARTHRITIS

REACTIONS (9)
  - Cataract [Unknown]
  - Dyspnoea [Unknown]
  - Rhinorrhoea [Unknown]
  - Chest discomfort [Unknown]
  - Decreased activity [Unknown]
  - Product use in unapproved indication [Unknown]
  - Middle insomnia [Recovering/Resolving]
  - Wheezing [Unknown]
  - Cough [Recovering/Resolving]
